FAERS Safety Report 7982968-X (Version None)
Quarter: 2011Q4

REPORT INFORMATION
  Report Type: 
  Country: None (occurrence: None)
  Receive Date: 20111215
  Receipt Date: 20111213
  Transmission Date: 20120403
  Serious: Yes (Hospitalization)
  Sender: FDA-Public Use
  Company Number: AU-B.I. PHARMACEUTICALS,INC./RIDGEFIELD-2011-AU-02429AU

PATIENT
  Sex: Female

DRUGS (8)
  1. PRAMIPEXOLE DIHYDROCHLORIDE [Suspect]
     Dates: end: 20111127
  2. FISH OIL [Concomitant]
  3. GLUCOSAMINE [Concomitant]
  4. DEXAMETHASONE [Concomitant]
  5. ACETAMINOPHEN [Concomitant]
  6. DOCITAXEL [Suspect]
     Indication: BREAST CANCER
  7. CARBOPLATIN [Suspect]
     Indication: BREAST CANCER
     Dates: start: 20111123
  8. LORATADINE [Concomitant]

REACTIONS (1)
  - RENAL FAILURE ACUTE [None]
